FAERS Safety Report 5694230-9 (Version None)
Quarter: 2008Q2

REPORT INFORMATION
  Report Type: 
  Country: None (occurrence: None)
  Receive Date: 20080403
  Receipt Date: 20080403
  Transmission Date: 20081010
  Serious: Yes (Life-Threatening)
  Sender: FDA-Public Use
  Company Number: None

PATIENT
  Age: 22 Year
  Sex: Female
  Weight: 70.3075 kg

DRUGS (1)
  1. THERASOL REGULAR ORATEC [Suspect]
     Indication: GINGIVAL INFECTION
     Dosage: SWISH A CAPSIZE AMOUNT INMOUTH TWICE A DAY PO  THREE TIMES
     Route: 048
     Dates: start: 20070719, end: 20070720

REACTIONS (12)
  - CHEILITIS [None]
  - DRUG EXPOSURE DURING PREGNANCY [None]
  - DYSPNOEA [None]
  - FATIGUE [None]
  - LIP BLISTER [None]
  - OEDEMA MOUTH [None]
  - ORAL DISCOMFORT [None]
  - OROPHARYNGEAL BLISTERING [None]
  - PHARYNGEAL OEDEMA [None]
  - STOMATITIS [None]
  - THIRST [None]
  - TONGUE BLISTERING [None]
